FAERS Safety Report 16968040 (Version 1)
Quarter: 2019Q4

REPORT INFORMATION
  Report Type: Spontaneous
  Country: IN (occurrence: IN)
  Receive Date: 20191028
  Receipt Date: 20191028
  Transmission Date: 20200122
  Serious: Yes (Death)
  Sender: FDA-Public Use
  Company Number: IN-ALLERGAN-1942985US

PATIENT

DRUGS (2)
  1. CEFTAZIDIME;AVIBACTAM - BP [Suspect]
     Active Substance: AVIBACTAM SODIUM\CEFTAZIDIME
     Indication: BILIARY TRACT DISORDER
  2. FOSFOMYCIN [Suspect]
     Active Substance: FOSFOMYCIN
     Indication: BILIARY TRACT DISORDER

REACTIONS (1)
  - Death [Fatal]
